FAERS Safety Report 24890451 (Version 1)
Quarter: 2025Q1

REPORT INFORMATION
  Report Type: Report from Study
  Country: US (occurrence: US)
  Receive Date: 20250127
  Receipt Date: 20250127
  Transmission Date: 20250409
  Serious: Yes (Hospitalization)
  Sender: Pyros Pharmaceuticals
  Company Number: US-PYROS PHARMACEUTICALS, INC-2024-PYROS-US000148

PATIENT
  Sex: Male
  Weight: 13.44 kg

DRUGS (7)
  1. VIGAFYDE [Suspect]
     Active Substance: VIGABATRIN
     Indication: Infantile spasms
     Dosage: 750 MG (7.5 ML), BID
     Route: 048
     Dates: start: 2024
  2. VIGAFYDE [Suspect]
     Active Substance: VIGABATRIN
     Dosage: 1000 MG (10 ML), BID
     Dates: end: 202501
  3. VIGAFYDE [Suspect]
     Active Substance: VIGABATRIN
     Dosage: 800 MG (8 ML), BID
     Route: 048
     Dates: start: 202501, end: 20250113
  4. VIGAFYDE [Suspect]
     Active Substance: VIGABATRIN
     Dosage: 600 MG (6 ML), BID
     Route: 048
     Dates: start: 20250114
  5. TOPIRAMATE [Concomitant]
     Active Substance: TOPIRAMATE
     Indication: Product used for unknown indication
     Route: 065
     Dates: end: 202501
  6. TOPIRAMATE [Concomitant]
     Active Substance: TOPIRAMATE
     Dosage: 50 MG, EVERY MORNING
     Route: 065
     Dates: start: 202501
  7. TOPIRAMATE [Concomitant]
     Active Substance: TOPIRAMATE
     Dosage: 75 MG, EVERY NIGHT AT BEDTIME
     Route: 065
     Dates: start: 202501

REACTIONS (7)
  - Respiratory syncytial virus infection [Recovered/Resolved]
  - Seizure [Recovered/Resolved]
  - Drug ineffective [Recovered/Resolved]
  - Ear infection [Unknown]
  - COVID-19 [Recovering/Resolving]
  - Middle insomnia [Recovering/Resolving]
  - Pyrexia [Unknown]

NARRATIVE: CASE EVENT DATE: 20240101
